FAERS Safety Report 24843931 (Version 1)
Quarter: 2025Q1

REPORT INFORMATION
  Report Type: Spontaneous
  Country: CA (occurrence: None)
  Receive Date: 20250115
  Receipt Date: 20250115
  Transmission Date: 20250408
  Serious: Yes (Other)
  Sender: ORION
  Company Number: CA-PFIZER INC-202500006488

PATIENT
  Age: 29 Year
  Sex: Male

DRUGS (1)
  1. METHOTREXATE [Suspect]
     Active Substance: METHOTREXATE
     Indication: Takayasu^s arteritis
     Dates: start: 2021

REACTIONS (7)
  - Xerophthalmia [Unknown]
  - Haematochezia [Unknown]
  - Product use in unapproved indication [Unknown]
  - Constipation [Unknown]
  - Neck pain [Unknown]
  - Vision blurred [Unknown]
  - Condition aggravated [Unknown]

NARRATIVE: CASE EVENT DATE: 20241201
